FAERS Safety Report 13385191 (Version 1)
Quarter: 2017Q1

REPORT INFORMATION
  Report Type: Report from Study
  Country: CA (occurrence: CA)
  Receive Date: 20170329
  Receipt Date: 20170329
  Transmission Date: 20170429
  Serious: Yes (Hospitalization)
  Sender: FDA-Public Use
  Company Number: PHHO2017CA005574

PATIENT
  Sex: Male
  Weight: 70.5 kg

DRUGS (4)
  1. GSK2141795 [Suspect]
     Active Substance: UPROSERTIB
     Dosage: 1400 MG, UNK
     Route: 048
     Dates: start: 20160113, end: 20160209
  2. TRAMETINIB [Suspect]
     Active Substance: TRAMETINIB
     Dosage: 42 MG, UNK
     Route: 048
     Dates: start: 20160113, end: 20160209
  3. GSK2141795 [Suspect]
     Active Substance: UPROSERTIB
     Indication: PLASMA CELL MYELOMA
     Dosage: UNK
     Route: 048
     Dates: start: 20151021
  4. TRAMETINIB [Suspect]
     Active Substance: TRAMETINIB
     Indication: PLASMA CELL MYELOMA
     Dosage: UNK
     Route: 048
     Dates: start: 20150701

REACTIONS (1)
  - Lung infection [Recovering/Resolving]

NARRATIVE: CASE EVENT DATE: 20160216
